FAERS Safety Report 14804294 (Version 1)
Quarter: 2018Q2

REPORT INFORMATION
  Report Type: Spontaneous
  Country: DE (occurrence: DE)
  Receive Date: 20180425
  Receipt Date: 20180425
  Transmission Date: 20180711
  Serious: Yes (Hospitalization)
  Sender: FDA-Public Use
  Company Number: DE-KRKA, D.D., NOVO MESTO-2046433

PATIENT
  Age: 90 Year
  Sex: Male
  Weight: 90 kg

DRUGS (6)
  1. METOPROLOL. [Suspect]
     Active Substance: METOPROLOL
     Route: 048
  2. TORASEMIDE [Suspect]
     Active Substance: TORSEMIDE
     Route: 048
  3. ENALAPRIL MALEATE. [Suspect]
     Active Substance: ENALAPRIL MALEATE
     Route: 048
  4. METFORMIN [Suspect]
     Active Substance: METFORMIN HYDROCHLORIDE
     Route: 048
  5. SPIRONOLACTONE. [Suspect]
     Active Substance: SPIRONOLACTONE
     Route: 048
  6. ACETYLSALICYLIC ACID [Concomitant]
     Active Substance: ASPIRIN
     Route: 048

REACTIONS (5)
  - Bundle branch block right [Unknown]
  - Dyspnoea [Unknown]
  - Drug prescribing error [Unknown]
  - Arrhythmia [Unknown]
  - Syncope [Unknown]
